FAERS Safety Report 20925079 (Version 1)
Quarter: 2022Q2

REPORT INFORMATION
  Report Type: Spontaneous
  Country: US (occurrence: US)
  Receive Date: 20220607
  Receipt Date: 20220607
  Transmission Date: 20220720
  Serious: No
  Sender: FDA-Public Use
  Company Number: US-GE HEALTHCARE-2022CSU001767

PATIENT

DRUGS (4)
  1. DATSCAN [Suspect]
     Active Substance: IODINE\IOFLUPANE I-123
     Indication: Diagnostic procedure
     Dosage: 195.36 MBQ, SINGLE
     Route: 065
     Dates: start: 20220310, end: 20220310
  2. DATSCAN [Suspect]
     Active Substance: IODINE\IOFLUPANE I-123
     Indication: Product used for unknown indication
  3. ONGENTYS [Concomitant]
     Active Substance: OPICAPONE
  4. CARBIDOPA\LEVODOPA [Concomitant]
     Active Substance: CARBIDOPA\LEVODOPA

REACTIONS (2)
  - Drug ineffective [Recovered/Resolved]
  - No adverse event [Recovered/Resolved]

NARRATIVE: CASE EVENT DATE: 20220310
